FAERS Safety Report 6528053-5 (Version None)
Quarter: 2010Q1

REPORT INFORMATION
  Report Type: 
  Country: None (occurrence: None)
  Receive Date: 20100106
  Receipt Date: 20100104
  Transmission Date: 20100710
  Serious: Yes (Hospitalization)
  Sender: FDA-Public Use
  Company Number: IT-BRISTOL-MYERS SQUIBB COMPANY-14920730

PATIENT
  Age: 69 Year
  Sex: Male
  Weight: 59 kg

DRUGS (7)
  1. CISPLATIN [Suspect]
     Indication: NON-SMALL CELL LUNG CANCER
     Route: 042
     Dates: start: 20091203
  2. AXITINIB [Suspect]
     Indication: NON-SMALL CELL LUNG CANCER
     Dosage: ON DAYS 2-19 OF EVERY 21 DAY CYCLE;
     Route: 048
     Dates: start: 20091204
  3. ALIMTA [Suspect]
     Indication: NON-SMALL CELL LUNG CANCER
     Dates: start: 20091203
  4. FOLIC ACID [Concomitant]
     Dates: start: 20091126, end: 20091210
  5. TROPISETRON [Concomitant]
     Dates: start: 20091203
  6. DEXAMETHASONE [Concomitant]
     Dates: start: 20091203, end: 20091203
  7. VITAMIN B-12 [Concomitant]
     Dates: start: 20091126, end: 20091126

REACTIONS (1)
  - FEMORAL ARTERY OCCLUSION [None]
